FAERS Safety Report 12260202 (Version 1)
Quarter: 2016Q2

REPORT INFORMATION
  Report Type: Spontaneous
  Country: US (occurrence: US)
  Receive Date: 20160412
  Receipt Date: 20160412
  Transmission Date: 20160815
  Serious: No
  Sender: FDA-Public Use
  Company Number: US-SA-2015SA184894

PATIENT
  Age: 82 Year
  Sex: Female

DRUGS (1)
  1. ALLEGRA [Suspect]
     Active Substance: FEXOFENADINE HYDROCHLORIDE
     Indication: MULTIPLE ALLERGIES
     Dosage: FREQUENCY: DAILY IF NEEDED
     Route: 065

REACTIONS (3)
  - Drug dose omission [Unknown]
  - Limb injury [Not Recovered/Not Resolved]
  - Bursitis [Not Recovered/Not Resolved]

NARRATIVE: CASE EVENT DATE: 20151102
